FAERS Safety Report 9311037 (Version 1)
Quarter: 2013Q2

REPORT INFORMATION
  Report Type: Spontaneous
  Country: US (occurrence: None)
  Receive Date: 20130523
  Receipt Date: 20130523
  Transmission Date: 20140414
  Serious: Yes (Other)
  Sender: FDA-Public Use
  Company Number: None

PATIENT
  Age: 40 Year
  Sex: 0
  Weight: 87 kg

DRUGS (3)
  1. DOXYCYCLINE HYCLATE [Suspect]
     Dosage: 1BID
     Route: 048
     Dates: start: 20130422, end: 20130506
  2. IBUPROFEN 400 MG [Concomitant]
  3. LEVOFLOXACIN 750MG CVS. MFR: DR. REDDY^S LAB [Concomitant]

REACTIONS (3)
  - Infusion site reaction [None]
  - Infection [None]
  - Leukopenia [None]
